FAERS Safety Report 17824442 (Version 2)
Quarter: 2020Q4

REPORT INFORMATION
  Report Type: Spontaneous
  Country: US (occurrence: US)
  Receive Date: 20200526
  Receipt Date: 20201007
  Transmission Date: 20210113
  Serious: Yes (Other)
  Sender: FDA-Public Use
  Company Number: US-009507513-2005USA007221

PATIENT
  Age: 77 Year
  Sex: Male

DRUGS (2)
  1. KEYTRUDA [Suspect]
     Active Substance: PEMBROLIZUMAB
     Indication: ADENOCARCINOMA GASTRIC
     Dosage: UNK
  2. KEYTRUDA [Suspect]
     Active Substance: PEMBROLIZUMAB
     Indication: RECTAL ADENOCARCINOMA

REACTIONS (2)
  - Seborrhoeic keratosis [Recovered/Resolved]
  - Squamous cell carcinoma of skin [Recovered/Resolved]
